FAERS Safety Report 7342712-6 (Version None)
Quarter: 2011Q1

REPORT INFORMATION
  Report Type: 
  Country: None (occurrence: None)
  Receive Date: 20110310
  Receipt Date: 20110308
  Transmission Date: 20110831
  Serious: Yes (Life-Threatening, Hospitalization)
  Sender: FDA-Public Use
  Company Number: GB-PFIZER INC-2011051312

PATIENT
  Age: 62 Year
  Sex: Male

DRUGS (1)
  1. CHAMPIX [Suspect]
     Dosage: 1 MG, UNK
     Dates: start: 20110201, end: 20110215

REACTIONS (2)
  - MONOPLEGIA [None]
  - TRANSIENT ISCHAEMIC ATTACK [None]
